FAERS Safety Report 4990190-4 (Version None)
Quarter: 2006Q2

REPORT INFORMATION
  Report Type: 
  Country: None (occurrence: None)
  Receive Date: 20060503
  Receipt Date: 20030715
  Transmission Date: 20061013
  Serious: Yes (Death, Other)
  Sender: FDA-Public Use
  Company Number: US-MERCK-0307USA01895

PATIENT
  Age: 46 Year
  Sex: Male
  Weight: 85 kg

DRUGS (4)
  1. VIOXX [Suspect]
     Indication: BACK PAIN
     Route: 048
     Dates: start: 20010410, end: 20010718
  2. VIOXX [Suspect]
     Route: 048
     Dates: start: 20010719, end: 20010722
  3. VICOPROFEN [Concomitant]
     Route: 065
  4. ASPIRIN [Concomitant]
     Route: 065

REACTIONS (18)
  - ACUTE MYOCARDIAL INFARCTION [None]
  - AORTIC ARTERIOSCLEROSIS [None]
  - ARTERIOSCLEROSIS CORONARY ARTERY [None]
  - ARTHRALGIA [None]
  - BLOOD CHLORIDE INCREASED [None]
  - BLOOD POTASSIUM INCREASED [None]
  - CARDIAC HYPERTROPHY [None]
  - CARDIOMEGALY [None]
  - CORONARY ARTERY OCCLUSION [None]
  - HYPERTENSION [None]
  - MALAISE [None]
  - OVERDOSE [None]
  - PNEUMONITIS [None]
  - PULMONARY CALCIFICATION [None]
  - PULMONARY CONGESTION [None]
  - SCIATICA [None]
  - SUDDEN CARDIAC DEATH [None]
  - VOMITING [None]
